FAERS Safety Report 21433471 (Version 1)
Quarter: 2022Q4

REPORT INFORMATION
  Report Type: Report from Study
  Country: IN (occurrence: IN)
  Receive Date: 20221010
  Receipt Date: 20221010
  Transmission Date: 20230113
  Serious: Yes (Other)
  Sender: FDA-Public Use
  Company Number: IN-SUN PHARMACEUTICAL INDUSTRIES LTD-2022R1-357965

PATIENT
  Age: 22 Year
  Sex: Female

DRUGS (3)
  1. LEVETIRACETAM [Suspect]
     Active Substance: LEVETIRACETAM
     Indication: Sturge-Weber syndrome
     Dosage: 1 GRAM, BID
     Route: 065
  2. PHENYTOIN [Suspect]
     Active Substance: PHENYTOIN
     Indication: Sturge-Weber syndrome
     Dosage: 100 MILLIGRAM, TID
     Route: 065
  3. VALPROATE [Suspect]
     Active Substance: VALPROIC ACID
     Indication: Sturge-Weber syndrome
     Dosage: UNK
     Route: 065

REACTIONS (3)
  - Gingival bleeding [Unknown]
  - Exposure during pregnancy [Unknown]
  - Drug ineffective [Unknown]
